FAERS Safety Report 13045788 (Version 1)
Quarter: 2016Q4

REPORT INFORMATION
  Report Type: Report from Study
  Country: US (occurrence: US)
  Receive Date: 20161220
  Receipt Date: 20161220
  Transmission Date: 20170207
  Serious: Yes (Other)
  Sender: FDA-Public Use
  Company Number: US-BAYER-2016-227433

PATIENT
  Age: 49 Year
  Sex: Male

DRUGS (2)
  1. XOFIGO [Suspect]
     Active Substance: RADIUM RA-223 DICHLORIDE
     Indication: METASTASES TO BONE
  2. XOFIGO [Suspect]
     Active Substance: RADIUM RA-223 DICHLORIDE
     Indication: HORMONE-REFRACTORY PROSTATE CANCER
     Dosage: 127.30 UCI, ONCE EVERY 28 DAYS
     Route: 042
     Dates: start: 20161027

REACTIONS (7)
  - Haemoglobin decreased [None]
  - Neutrophil count decreased [None]
  - Haematocrit decreased [None]
  - Red blood cell count decreased [None]
  - Platelet count decreased [None]
  - White blood cell count decreased [None]
  - Lymphocyte count decreased [None]

NARRATIVE: CASE EVENT DATE: 20161206
